FAERS Safety Report 18480320 (Version 1)
Quarter: 2020Q4

REPORT INFORMATION
  Report Type: Spontaneous
  Country: AU (occurrence: AU)
  Receive Date: 20201109
  Receipt Date: 20201109
  Transmission Date: 20210114
  Serious: Yes (Other)
  Sender: FDA-Public Use
  Company Number: AU-PFIZER INC-2020425432

PATIENT
  Age: 11 Year
  Sex: Male
  Weight: 38 kg

DRUGS (7)
  1. TOFACITINIB CITRATE [Suspect]
     Active Substance: TOFACITINIB CITRATE
     Indication: ALOPECIA AREATA
     Dosage: UNK, DAILY (TOFACITINIB AT A DOSE BETWEEN 2.5 AND 7.5 MG DAILY  (4.1 MG; 0.05-0.2 MG/KG/DAY)
     Route: 048
  2. PREDNISOLONE. [Concomitant]
     Active Substance: PREDNISOLONE
     Dosage: 0.13 MG/KG, 1X/DAY (TAPERED OVER 8 WEEKS AT 15 MONTHS)
  3. TOFACITINIB CITRATE [Suspect]
     Active Substance: TOFACITINIB CITRATE
     Dosage: 5 MG, DAILY
     Route: 048
  4. MINOXIDIL. [Concomitant]
     Active Substance: MINOXIDIL
     Indication: ALOPECIA AREATA
     Dosage: 0.5 MG, 1X/DAY
  5. CLOBETASOL PROPIONATE. [Concomitant]
     Active Substance: CLOBETASOL PROPIONATE
     Indication: ALOPECIA AREATA
     Dosage: UNK, INTERMITTENTLY
  6. TOFACITINIB CITRATE [Suspect]
     Active Substance: TOFACITINIB CITRATE
     Dosage: 15 MG, DAILY
     Route: 048
  7. PREDNISOLONE. [Concomitant]
     Active Substance: PREDNISOLONE
     Indication: ALOPECIA AREATA
     Dosage: 0.13 MG/KG, 1X/DAY ((MAXIMUM) TAPERED OVER 4 WEEKS)

REACTIONS (8)
  - Hyperkalaemia [Unknown]
  - Alanine aminotransferase increased [Unknown]
  - Blood urea increased [Unknown]
  - Upper respiratory tract infection [Unknown]
  - Eosinophilia [Unknown]
  - Drug ineffective for unapproved indication [Unknown]
  - Aspartate aminotransferase increased [Unknown]
  - Off label use [Unknown]
